FAERS Safety Report 20942971 (Version 3)
Quarter: 2022Q4

REPORT INFORMATION
  Report Type: Report from Study
  Country: CA (occurrence: CA)
  Receive Date: 20220610
  Receipt Date: 20221206
  Transmission Date: 20230112
  Serious: Yes (Hospitalization, Other)
  Sender: FDA-Public Use
  Company Number: CA-JNJFOC-20220437268

PATIENT
  Age: 30 Year
  Sex: Female
  Weight: 60 kg

DRUGS (1)
  1. REMICADE [Suspect]
     Active Substance: INFLIXIMAB
     Indication: Colitis ulcerative
     Route: 042
     Dates: start: 20120912

REACTIONS (7)
  - Pneumonia bacterial [Recovering/Resolving]
  - Viraemia [Recovering/Resolving]
  - Exposure during pregnancy [Recovered/Resolved]
  - Premature labour [Unknown]
  - Pharyngitis bacterial [Recovering/Resolving]
  - Bronchitis [Recovering/Resolving]
  - COVID-19 [Recovered/Resolved]

NARRATIVE: CASE EVENT DATE: 20220201
